FAERS Safety Report 23824509 (Version 1)
Quarter: 2024Q2

REPORT INFORMATION
  Report Type: Spontaneous
  Country: ZA (occurrence: None)
  Receive Date: 20240507
  Receipt Date: 20240507
  Transmission Date: 20240716
  Serious: Yes (Hospitalization)
  Sender: FDA-Public Use
  Company Number: 2024A101690

PATIENT
  Sex: Female

DRUGS (7)
  1. DAPAGLIFLOZIN PROPANEDIOL [Suspect]
     Active Substance: DAPAGLIFLOZIN PROPANEDIOL
     Indication: Type 2 diabetes mellitus
     Dosage: 10.0MG UNKNOWN
     Route: 048
  2. BISOPROLOL FUMARATE [Concomitant]
     Active Substance: BISOPROLOL FUMARATE
     Indication: Cardiac failure
     Dosage: 5.0MG UNKNOWN
  3. FUROSEMIDE [Concomitant]
     Active Substance: FUROSEMIDE
     Indication: Cardiac failure
     Dosage: 40.0MG UNKNOWN
  4. BASAGLAR CARTRIDGE [Concomitant]
     Indication: Type 1 diabetes mellitus
     Dosage: 100.0IU UNKNOWN
     Route: 058
  5. HUMALOG KWIKPEN PENSET [Concomitant]
     Indication: Type 1 diabetes mellitus
     Dosage: 100.0IU UNKNOWN
     Route: 058
  6. PRAMIPEXOLE DIHYDROCHLORIDE [Concomitant]
     Active Substance: PRAMIPEXOLE DIHYDROCHLORIDE
     Indication: Restless legs syndrome
     Dosage: 1.0MG UNKNOWN
  7. CARBILEV [Concomitant]
     Active Substance: CARBIDOPA\LEVODOPA
     Indication: Parkinson^s disease
     Dosage: 25.0MG UNKNOWN

REACTIONS (1)
  - Blood pressure abnormal [Unknown]
